FAERS Safety Report 13398013 (Version 2)
Quarter: 2017Q2

REPORT INFORMATION
  Report Type: Report from Study
  Country: FR (occurrence: FR)
  Receive Date: 20170403
  Receipt Date: 20170417
  Transmission Date: 20170830
  Serious: Yes (Other)
  Sender: FDA-Public Use
  Company Number: FR-TEVA-756390ROM

PATIENT
  Sex: Female

DRUGS (1)
  1. METHOTREXATE. [Suspect]
     Active Substance: METHOTREXATE
     Indication: METASTASES TO MENINGES
     Route: 037

REACTIONS (1)
  - Arachnoiditis [Unknown]
